FAERS Safety Report 6012623-7 (Version None)
Quarter: 2008Q4

REPORT INFORMATION
  Report Type: 
  Country: None (occurrence: None)
  Receive Date: 20081217
  Receipt Date: 20081202
  Transmission Date: 20090506
  Serious: Yes (Death)
  Sender: FDA-Public Use
  Company Number: 2008S1021504

PATIENT
  Age: 18 Year
  Sex: Female

DRUGS (5)
  1. METHOTREXATE [Suspect]
     Indication: ACUTE LYMPHOCYTIC LEUKAEMIA RECURRENT
     Dosage: 15 MG;  INTRATHRECAL
     Route: 037
  2. CYTARABINE [Suspect]
     Indication: ACUTE LYMPHOCYTIC LEUKAEMIA RECURRENT
     Dosage: 40 MG; INTRATHECAL
     Route: 037
  3. HYDROCORTISONE [Suspect]
     Indication: ACUTE LYMPHOCYTIC LEUKAEMIA RECURRENT
     Dosage: 50 MG; INTRATHECAL
     Route: 037
  4. CYCLOPHOSPHAMIDE [Concomitant]
  5. CYCLOSPORINE [Concomitant]

REACTIONS (4)
  - AZOTAEMIA [None]
  - CARDIAC FAILURE CONGESTIVE [None]
  - OLIGURIA [None]
  - TUMOUR LYSIS SYNDROME [None]
